FAERS Safety Report 9120660 (Version 3)
Quarter: 2013Q3

REPORT INFORMATION
  Report Type: Spontaneous
  Country: ZA (occurrence: ZA)
  Receive Date: 20130226
  Receipt Date: 20130919
  Transmission Date: 20140515
  Serious: Yes (Other)
  Sender: FDA-Public Use
  Company Number: ZA-ROCHE-1194136

PATIENT
  Sex: Male

DRUGS (6)
  1. LUCENTIS [Suspect]
     Indication: AGE-RELATED MACULAR DEGENERATION
     Route: 050
     Dates: start: 20120215
  2. LUCENTIS [Suspect]
     Route: 050
     Dates: start: 20120514
  3. LUCENTIS [Suspect]
     Route: 050
     Dates: start: 20120713
  4. LUCENTIS [Suspect]
     Route: 050
     Dates: start: 20120803
  5. LUCENTIS [Suspect]
     Route: 050
     Dates: start: 20121022
  6. AVASTIN [Concomitant]
     Route: 065
     Dates: start: 2009

REACTIONS (1)
  - Age-related macular degeneration [Unknown]
